FAERS Safety Report 8590142-1 (Version None)
Quarter: 2012Q3

REPORT INFORMATION
  Report Type: 
  Country: None (occurrence: None)
  Receive Date: 20120813
  Receipt Date: 20120529
  Transmission Date: 20120928
  Serious: Yes (Congenital Anomaly)
  Sender: FDA-Public Use
  Company Number: US-GILEAD-2012-0050223

PATIENT

DRUGS (3)
  1. NORVIR [Concomitant]
     Indication: ANTIVIRAL TREATMENT
     Route: 064
  2. REYATAZ [Concomitant]
     Indication: ANTIVIRAL TREATMENT
     Route: 064
  3. EMTRICITABINE/TENOFOVIR DISOPROXIL FUMARATE [Suspect]
     Indication: HIV INFECTION
     Route: 064

REACTIONS (3)
  - ABORTION INDUCED [None]
  - SKULL MALFORMATION [None]
  - MATERNAL DRUGS AFFECTING FOETUS [None]
